FAERS Safety Report 16481469 (Version 2)
Quarter: 2019Q4

REPORT INFORMATION
  Report Type: Report from Study
  Country: None (occurrence: US)
  Receive Date: 20190627
  Receipt Date: 20191125
  Transmission Date: 20200122
  Serious: Yes (Other)
  Sender: FDA-Public Use
  Company Number: US-ABBVIE-19K-163-2772976-00

PATIENT
  Sex: Female

DRUGS (1)
  1. HUMIRA [Suspect]
     Active Substance: ADALIMUMAB
     Indication: CROHN^S DISEASE
     Route: 058

REACTIONS (7)
  - General physical health deterioration [Not Recovered/Not Resolved]
  - Escherichia infection [Recovered/Resolved]
  - Gastric haemorrhage [Unknown]
  - Animal bite [Recovered/Resolved]
  - Abdominal discomfort [Not Recovered/Not Resolved]
  - Oesophageal oedema [Unknown]
  - Respiratory disorder [Not Recovered/Not Resolved]

NARRATIVE: CASE EVENT DATE: 2019
